FAERS Safety Report 5180060-3 (Version None)
Quarter: 2006Q4

REPORT INFORMATION
  Report Type: 
  Country: None (occurrence: None)
  Receive Date: 20061211
  Receipt Date: 20061107
  Transmission Date: 20070319
  Serious: Yes (Hospitalization)
  Sender: FDA-Public Use
  Company Number: SHI_0028_2006

PATIENT
  Age: 3 Year
  Sex: Female
  Weight: 13.1 kg

DRUGS (2)
  1. KEIMAX [Suspect]
     Indication: BRONCHITIS
     Dosage: 7.5 ML, QDAY;
     Dates: start: 20061102, end: 20061103
  2. KEIMAX [Suspect]
     Indication: PNEUMONIA
     Dosage: 7.5 ML, QDAY;
     Dates: start: 20061102, end: 20061103

REACTIONS (3)
  - HEPATITIS [None]
  - HEPATOSPLENOMEGALY [None]
  - PNEUMONIA [None]
